FAERS Safety Report 16206619 (Version 1)
Quarter: 2019Q2

REPORT INFORMATION
  Report Type: Spontaneous
  Country: US (occurrence: US)
  Receive Date: 20190416
  Receipt Date: 20190416
  Transmission Date: 20190711
  Serious: No
  Sender: FDA-Public Use
  Company Number: None

PATIENT
  Age: 59 Year
  Sex: Female
  Weight: 57.6 kg

DRUGS (1)
  1. PROPOFOL. [Suspect]
     Active Substance: PROPOFOL
     Indication: ANAESTHESIA
     Dosage: ?          OTHER FREQUENCY:PREOPERATIVE;?
     Route: 042
     Dates: start: 20190415, end: 20190415

REACTIONS (2)
  - Tinnitus [None]
  - Flushing [None]

NARRATIVE: CASE EVENT DATE: 20190415
